FAERS Safety Report 6126453-9 (Version None)
Quarter: 2009Q1

REPORT INFORMATION
  Report Type: 
  Country: None (occurrence: None)
  Receive Date: 20090320
  Receipt Date: 20090107
  Transmission Date: 20090719
  Serious: Yes (Life-Threatening, Hospitalization)
  Sender: FDA-Public Use
  Company Number: JP-ABBOTT-09P-087-0563061-00

PATIENT
  Age: 67 Year
  Sex: Female
  Weight: 54.9 kg

DRUGS (11)
  1. CLARITHROMYCIN [Suspect]
     Indication: BRONCHITIS
     Route: 048
     Dates: start: 20081225, end: 20081231
  2. FOSFOMYCIN [Suspect]
     Indication: GASTROENTERITIS
     Route: 048
     Dates: start: 20081212, end: 20081217
  3. CATAPRES [Concomitant]
     Indication: HYPERTENSION
     Route: 048
  4. ALMYLAR [Concomitant]
     Indication: HYPERTENSION
     Route: 048
  5. MEVALOTIN [Concomitant]
     Indication: HYPERLIPIDAEMIA
     Route: 048
  6. THEO-DUR [Concomitant]
     Indication: ASTHMA
     Route: 048
  7. HOKUNALIN [Concomitant]
     Indication: ASTHMA
     Route: 062
  8. QVAR 40 [Concomitant]
     Indication: ASTHMA
     Route: 055
  9. GLIMICRON [Concomitant]
     Indication: DIABETES MELLITUS
     Route: 048
     Dates: end: 20090103
  10. COFDENIN A [Concomitant]
     Indication: BRONCHITIS
     Route: 048
     Dates: start: 20081225, end: 20081231
  11. ONON [Concomitant]
     Indication: DRUG USE FOR UNKNOWN INDICATION
     Route: 048
     Dates: end: 20090113

REACTIONS (1)
  - AGRANULOCYTOSIS [None]
